FAERS Safety Report 8993179 (Version 2)
Quarter: 2013Q1

REPORT INFORMATION
  Report Type: Report from Study
  Country: JP (occurrence: JP)
  Receive Date: 20130102
  Receipt Date: 20130211
  Transmission Date: 20140127
  Serious: Yes (Death)
  Sender: FDA-Public Use
  Company Number: JP-ROCHE-1174345

PATIENT
  Sex: Male
  Weight: 50 kg

DRUGS (3)
  1. METHOXY POLYETHYLENE GLYCOL-EPOETIN BETA [Suspect]
     Indication: NEPHROGENIC ANAEMIA
     Route: 042
     Dates: start: 20111116, end: 20111214
  2. VASOLATOR [Concomitant]
     Route: 062
     Dates: end: 20120102
  3. BAYASPIRIN [Concomitant]
     Route: 048
     Dates: end: 20120102

REACTIONS (1)
  - General physical health deterioration [Fatal]
